FAERS Safety Report 25329347 (Version 1)
Quarter: 2025Q2

REPORT INFORMATION
  Report Type: Spontaneous
  Country: US (occurrence: US)
  Receive Date: 20250519
  Receipt Date: 20250519
  Transmission Date: 20250717
  Serious: Yes (Other)
  Sender: COOPERSURGICAL
  Company Number: US-COOPERSURGICAL, INC.-2025CPS003859

PATIENT
  Age: 36 Year
  Sex: Female
  Weight: 62.585 kg

DRUGS (4)
  1. PARAGARD T 380A [Suspect]
     Active Substance: COPPER
     Route: 015
     Dates: start: 20150429
  2. LEXAPRO [Concomitant]
     Active Substance: ESCITALOPRAM OXALATE
     Dates: start: 202101
  3. ATARAX [Concomitant]
     Active Substance: HYDROXYZINE HYDROCHLORIDE
     Dates: start: 202101
  4. ADDERALL [Concomitant]
     Active Substance: AMPHETAMINE ASPARTATE\AMPHETAMINE SULFATE\DEXTROAMPHETAMINE SACCHARATE\DEXTROAMPHETAMINE SULFATE
     Dates: start: 20220101

REACTIONS (7)
  - Reproductive complication associated with device [Not Recovered/Not Resolved]
  - Device breakage [Recovered/Resolved]
  - Foreign body in reproductive tract [Recovered/Resolved]
  - Complication of device removal [Recovered/Resolved]
  - Anxiety [Recovered/Resolved]
  - Depression [Recovered/Resolved]
  - Attention deficit hyperactivity disorder [Recovered/Resolved]

NARRATIVE: CASE EVENT DATE: 20220126
